FAERS Safety Report 24414287 (Version 1)
Quarter: 2024Q4

REPORT INFORMATION
  Report Type: Report from Study
  Country: EG (occurrence: EG)
  Receive Date: 20241009
  Receipt Date: 20241009
  Transmission Date: 20250114
  Serious: Yes (Other)
  Sender: ALEXION PHARMACEUTICALS
  Company Number: EG-AstraZeneca-CH-00714117A

PATIENT
  Age: 69 Year

DRUGS (12)
  1. IMFINZI [Suspect]
     Active Substance: DURVALUMAB
     Indication: Cholangiocarcinoma
  2. IMFINZI [Suspect]
     Active Substance: DURVALUMAB
  3. IMFINZI [Suspect]
     Active Substance: DURVALUMAB
  4. IMFINZI [Suspect]
     Active Substance: DURVALUMAB
  5. OLMESARTAN MEDOXOMIL [Concomitant]
     Active Substance: OLMESARTAN MEDOXOMIL
  6. OLMESARTAN MEDOXOMIL [Concomitant]
     Active Substance: OLMESARTAN MEDOXOMIL
     Route: 065
  7. ELIQUIS [Concomitant]
     Active Substance: APIXABAN
  8. ELIQUIS [Concomitant]
     Active Substance: APIXABAN
     Route: 065
  9. GEMCITABINE [Concomitant]
     Active Substance: GEMCITABINE
  10. GEMCITABINE [Concomitant]
     Active Substance: GEMCITABINE
     Route: 065
  11. CISPLATIN [Concomitant]
     Active Substance: CISPLATIN
  12. CISPLATIN [Concomitant]
     Active Substance: CISPLATIN
     Route: 065

REACTIONS (3)
  - Malignant neoplasm progression [Unknown]
  - Hypertension [Unknown]
  - Atrial flutter [Unknown]
